FAERS Safety Report 14949729 (Version 1)
Quarter: 2018Q2

REPORT INFORMATION
  Report Type: Spontaneous
  Country: FR (occurrence: FR)
  Receive Date: 20180529
  Receipt Date: 20180529
  Transmission Date: 20180711
  Serious: Yes (Other)
  Sender: FDA-Public Use
  Company Number: FR-MERCK KGAA-2048629

PATIENT
  Age: 76 Year
  Sex: Female

DRUGS (1)
  1. NOVOTHYROX [Suspect]
     Active Substance: LEVOTHYROXINE SODIUM
     Indication: HYPOTHYROIDISM
     Dates: start: 2017, end: 201710

REACTIONS (20)
  - Neutrophil count decreased [Recovered/Resolved]
  - Insomnia [None]
  - Decreased activity [None]
  - Asocial behaviour [None]
  - Functional gastrointestinal disorder [Recovering/Resolving]
  - Loss of personal independence in daily activities [None]
  - Haematocrit decreased [None]
  - Nausea [None]
  - Arthralgia [None]
  - Abdominal pain upper [None]
  - Middle insomnia [None]
  - Serum ferritin [None]
  - Pain [Recovering/Resolving]
  - Fatigue [None]
  - Headache [Recovering/Resolving]
  - Abdominal pain [None]
  - Antisocial personality disorder [None]
  - Nervousness [None]
  - Red blood cell sedimentation rate increased [None]
  - Haemoglobin decreased [None]

NARRATIVE: CASE EVENT DATE: 2017
